FAERS Safety Report 12908795 (Version 2)
Quarter: 2017Q1

REPORT INFORMATION
  Report Type: Report from Study
  Country: US (occurrence: US)
  Receive Date: 20161103
  Receipt Date: 20170118
  Transmission Date: 20170428
  Serious: Yes (Other)
  Sender: FDA-Public Use
  Company Number: US-GILEAD-2016-0240969

PATIENT
  Age: 65 Year
  Sex: Male

DRUGS (2)
  1. AZTREONAM LYSINE [Suspect]
     Active Substance: AZTREONAM LYSINE
     Indication: CYSTIC FIBROSIS LUNG
     Dosage: 75 MG, UNK
     Route: 055
     Dates: start: 20160428
  2. AZTREONAM LYSINE [Suspect]
     Active Substance: AZTREONAM LYSINE
     Indication: PSEUDOMONAS INFECTION

REACTIONS (1)
  - Lung transplant [Unknown]

NARRATIVE: CASE EVENT DATE: 20161023
